FAERS Safety Report 8860556 (Version 2)
Quarter: 2012Q4

REPORT INFORMATION
  Report Type: 
  Country: MA (occurrence: MA)
  Receive Date: 20121025
  Receipt Date: 20121107
  Transmission Date: 20130627
  Serious: Yes (Other)
  Sender: FDA-Public Use
  Company Number: MA-PFIZER INC-2012263676

PATIENT
  Age: 64 Year
  Sex: Female
  Weight: 65 kg

DRUGS (1)
  1. AROMASINE [Suspect]
     Indication: BREAST CANCER
     Dosage: 25 mg, 1x/day
     Route: 048
     Dates: start: 20110228

REACTIONS (3)
  - Hepatic fibrosis [Unknown]
  - Headache [Unknown]
  - Dizziness [Unknown]
